FAERS Safety Report 15464842 (Version 1)
Quarter: 2018Q4

REPORT INFORMATION
  Report Type: Spontaneous
  Country: US (occurrence: US)
  Receive Date: 20181004
  Receipt Date: 20181004
  Transmission Date: 20190204
  Serious: No
  Sender: FDA-Public Use
  Company Number: US-TARO-2018TAR00401

PATIENT
  Age: 5 Year
  Sex: Female
  Weight: 27.66 kg

DRUGS (1)
  1. LORATADINE SYRUP (LORATADINE ORAL SOLUTION USP) 5MG/5ML [Suspect]
     Active Substance: LORATADINE
     Indication: SEASONAL ALLERGY
     Dosage: 5 MG, 1X/DAY AS NEEDED
     Route: 048
     Dates: start: 2016

REACTIONS (1)
  - Ear pain [Not Recovered/Not Resolved]

NARRATIVE: CASE EVENT DATE: 20180522
